FAERS Safety Report 20738208 (Version 1)
Quarter: 2022Q2

REPORT INFORMATION
  Report Type: Spontaneous
  Country: US (occurrence: US)
  Receive Date: 20220422
  Receipt Date: 20220422
  Transmission Date: 20220721
  Serious: Yes (Hospitalization)
  Sender: FDA-Public Use
  Company Number: US-BRISTOL-MYERS SQUIBB COMPANY-2022-020406

PATIENT
  Age: 76 Year
  Sex: Male
  Weight: 90 kg

DRUGS (9)
  1. REVLIMID [Suspect]
     Active Substance: LENALIDOMIDE
     Indication: Plasma cell myeloma
     Dosage: 3 DAYS A WEEK (TUES, THRUS, SAT AFTER DIALYSIS)
     Route: 048
     Dates: start: 20160510, end: 20160705
  2. REVLIMID [Suspect]
     Active Substance: LENALIDOMIDE
     Dosage: (EVERY TUES AND SAT AFTER DISLYSIS)
     Route: 048
     Dates: start: 20161121, end: 20170213
  3. REVLIMID [Suspect]
     Active Substance: LENALIDOMIDE
     Dosage: (TUES, THRUS, SAT AFTER DIALYSIS)
     Route: 048
     Dates: start: 20170214, end: 20200317
  4. DECADRON [Suspect]
     Active Substance: DEXAMETHASONE
     Indication: Plasma cell myeloma
     Dosage: HIGH DOSE,  DAYS 1-5
     Route: 042
     Dates: start: 20160317, end: 20160405
  5. DECADRON [Suspect]
     Active Substance: DEXAMETHASONE
     Dosage: DAYS 9-12, 17-20 OF CYCLE 1
     Route: 048
     Dates: start: 20160317, end: 20160405
  6. DECADRON [Suspect]
     Active Substance: DEXAMETHASONE
     Route: 048
     Dates: start: 20160405, end: 20160705
  7. VELCADE [Suspect]
     Active Substance: BORTEZOMIB
     Indication: Plasma cell myeloma
     Dosage: (DAYS 1, 5, 8 AND 12 OF A 21 DAY CYCLE FOR CYCLE 1)
     Route: 058
     Dates: start: 20160317, end: 20160328
  8. VELCADE [Suspect]
     Active Substance: BORTEZOMIB
     Dosage: (1X WEEKLY, NO REST PERIOD: DAY 1 Q 7D)
     Route: 058
     Dates: start: 20160405, end: 20160705
  9. ALKERAN [Suspect]
     Active Substance: MELPHALAN
     Indication: Plasma cell myeloma
     Dosage: ONCE
     Route: 042
     Dates: start: 20160815, end: 20160815

REACTIONS (2)
  - Urinary tract infection [Recovered/Resolved]
  - Fall [Unknown]

NARRATIVE: CASE EVENT DATE: 20220329
